FAERS Safety Report 7988014-6 (Version None)
Quarter: 2011Q4

REPORT INFORMATION
  Report Type: 
  Country: None (occurrence: None)
  Receive Date: 20111216
  Receipt Date: 20101124
  Transmission Date: 20120403
  Serious: No
  Sender: FDA-Public Use
  Company Number: US-BRISTOL-MYERS SQUIBB COMPANY-15406242

PATIENT
  Sex: Female

DRUGS (3)
  1. ABILIFY [Suspect]
  2. LITHIUM CARBONATE [Concomitant]
  3. LUPRON DEPOT [Suspect]
     Indication: ENDOMETRIOSIS

REACTIONS (1)
  - WEIGHT INCREASED [None]
